FAERS Safety Report 6318303-2 (Version None)
Quarter: 2009Q3

REPORT INFORMATION
  Report Type: 
  Country: None (occurrence: None)
  Receive Date: 20090821
  Receipt Date: 20090809
  Transmission Date: 20100115
  Serious: Yes (Other)
  Sender: FDA-Public Use
  Company Number: US-PFIZER INC-2009253829

PATIENT
  Sex: Female
  Weight: 61.234 kg

DRUGS (3)
  1. CHANTIX [Suspect]
     Indication: SMOKING CESSATION THERAPY
     Dosage: 0.5 MG, 2X/DAY
     Route: 048
     Dates: start: 20090805
  2. PERCOCET [Concomitant]
     Route: 048
  3. CLINDAMYCIN CREAM [Concomitant]
     Dosage: UNK
     Route: 067

REACTIONS (1)
  - EYE SWELLING [None]
